FAERS Safety Report 5677222-5 (Version None)
Quarter: 2008Q1

REPORT INFORMATION
  Report Type: 
  Country: None (occurrence: None)
  Receive Date: 20080324
  Receipt Date: 20080313
  Transmission Date: 20080703
  Serious: Yes (Other)
  Sender: FDA-Public Use
  Company Number: HQWYE161216MAR05

PATIENT
  Sex: Female

DRUGS (4)
  1. PREMPRO [Suspect]
  2. PROVERA [Suspect]
  3. MEDROXYPROGESTERONE [Suspect]
  4. CONJUGATED ESTROGENS [Suspect]

REACTIONS (1)
  - BREAST CANCER METASTATIC [None]
